FAERS Safety Report 6508771-5 (Version None)
Quarter: 2009Q4

REPORT INFORMATION
  Report Type: 
  Country: None (occurrence: None)
  Receive Date: 20091221
  Receipt Date: 20091210
  Transmission Date: 20100525
  Serious: Yes (Death, Life-Threatening)
  Sender: FDA-Public Use
  Company Number: US-ELI_LILLY_AND_COMPANY-US200912001743

PATIENT
  Sex: Male
  Weight: 75.283 kg

DRUGS (31)
  1. ZYPREXA [Suspect]
     Indication: AGITATION
     Dosage: 2.5 MG, UNK
     Route: 030
     Dates: start: 20091204
  2. NORVASC [Concomitant]
     Dosage: 2.5 MG, UNK
     Dates: end: 20091202
  3. ANESTHETICS, GENERAL [Concomitant]
     Dates: start: 20091201
  4. ANTIBIOTICS [Concomitant]
     Indication: PROPHYLAXIS
     Dosage: 1 D/F, UNK
     Dates: start: 20091201
  5. DEXTROSE [Concomitant]
     Dates: start: 20091204
  6. D5NM [Concomitant]
     Dosage: 150 ML, UNK
  7. POTASSIUM [Concomitant]
     Dosage: 20 MG, UNK
  8. NEXIUM [Concomitant]
     Dosage: 40 MG, DAILY (1/D)
     Route: 048
     Dates: start: 20091202
  9. LASIX [Concomitant]
     Dosage: 40 MG, UNK
     Route: 042
     Dates: start: 20091203, end: 20091204
  10. HALDOL /SCH/ [Concomitant]
     Indication: AGITATION
     Dosage: 1 MG, AS NEEDED
     Route: 030
     Dates: start: 20091202, end: 20091204
  11. LORTAB [Concomitant]
     Dosage: 1 D/F, UNK
     Route: 048
     Dates: start: 20091201
  12. HYDROCHLOROTHIAZIDE [Concomitant]
     Dosage: 1 D/F, UNK
     Dates: start: 20091201
  13. HYDROCHLOROTHIAZIDE [Concomitant]
     Dosage: 1 D/F, UNK
     Dates: start: 20091202
  14. XOPENEX [Concomitant]
     Dosage: 0.63 MG, 3/D
  15. SYNTHROID [Concomitant]
     Dosage: 175 UG, DAILY (1/D)
  16. LISINOPRIL [Concomitant]
     Dosage: 10 MG, DAILY (1/D)
     Dates: start: 20091201
  17. LISINOPRIL [Concomitant]
     Dosage: 10 MG, UNK
     Dates: start: 20091202
  18. LOPRESSOR [Concomitant]
     Dosage: 5 MG, UNK
     Route: 042
     Dates: start: 20091203
  19. NASAL SPRAY [Concomitant]
     Dosage: 1 D/F, 2/D
  20. MUPIROCIN [Concomitant]
     Route: 061
  21. OXYCONTIN [Concomitant]
     Dosage: 20 MG, 2/D
     Dates: start: 20091201
  22. OXYCONTIN [Concomitant]
     Dosage: 20 MG, 2/D
     Dates: start: 20091202
  23. PHENERGAN HCL [Concomitant]
     Dosage: 12.5 MG, UNK
     Route: 042
  24. NAROPIN [Concomitant]
     Dosage: 0.4 MG, EACH EVENING
  25. BUPIVACAINE [Concomitant]
     Dosage: 0.4 MG, EACH EVENING
  26. FLOMAX [Concomitant]
     Dosage: 0.4 MG, EACH EVENING
  27. SPIRIVA [Concomitant]
     Dosage: UNK, UNK
     Route: 055
     Dates: start: 20091201, end: 20091204
  28. ULTRAM [Concomitant]
     Indication: PAIN
     Dosage: 50 MG, UNK
     Dates: start: 20091204
  29. ULTRAM [Concomitant]
     Dosage: 100 MG, AS NEEDED
     Dates: start: 20091204
  30. COUMADIN [Concomitant]
     Dosage: 1 D/F, DAILY (1/D)
     Route: 048
     Dates: start: 20091201, end: 20091204
  31. SOTALOL HCL [Concomitant]
     Dosage: 1 D/F, UNK
     Dates: start: 20091201, end: 20091204

REACTIONS (3)
  - ATRIAL FIBRILLATION [None]
  - ELECTROMECHANICAL DISSOCIATION [None]
  - OFF LABEL USE [None]
